FAERS Safety Report 6838778-X (Version None)
Quarter: 2010Q3

REPORT INFORMATION
  Report Type: 
  Country: None (occurrence: None)
  Receive Date: 20100713
  Receipt Date: 20070627
  Transmission Date: 20110219
  Serious: Yes (Hospitalization, Other)
  Sender: FDA-Public Use
  Company Number: US-PFIZER INC-2007035352

PATIENT
  Sex: Male
  Weight: 100 kg

DRUGS (9)
  1. CHANTIX [Suspect]
     Indication: SMOKING CESSATION THERAPY
     Dates: start: 20070402, end: 20070413
  2. CHANTIX [Interacting]
     Indication: TOBACCO USER
  3. ALL OTHER THERAPEUTIC PRODUCTS [Interacting]
     Indication: PAIN
  4. DURAGESIC-100 [Concomitant]
  5. MORPHINE [Concomitant]
     Indication: BREAKTHROUGH PAIN
  6. WARFARIN SODIUM [Concomitant]
  7. PLETAL [Concomitant]
  8. XANAX [Concomitant]
  9. ZOCOR [Concomitant]

REACTIONS (3)
  - DRUG INTERACTION [None]
  - PAIN [None]
  - TRANSIENT ISCHAEMIC ATTACK [None]
